FAERS Safety Report 10948291 (Version 1)
Quarter: 2015Q1

REPORT INFORMATION
  Report Type: Report from Study
  Country: US (occurrence: US)
  Receive Date: 20150324
  Receipt Date: 20150324
  Transmission Date: 20150721
  Serious: Yes (Hospitalization)
  Sender: FDA-Public Use
  Company Number: US-GILEAD-2015-0143884

PATIENT
  Age: 78 Year
  Sex: Female

DRUGS (16)
  1. ZOCOR [Concomitant]
     Active Substance: SIMVASTATIN
  2. COLCHICINE. [Concomitant]
     Active Substance: COLCHICINE
  3. AZATHIOPRINE. [Concomitant]
     Active Substance: AZATHIOPRINE
  4. LASIX [Concomitant]
     Active Substance: FUROSEMIDE
  5. FERROUS SULFATE [Concomitant]
     Active Substance: FERROUS SULFATE\FERROUS SULFATE, DRIED
  6. ALENDRONATE [Concomitant]
     Active Substance: ALENDRONATE SODIUM
  7. AMBRISENTAN [Suspect]
     Active Substance: AMBRISENTAN
     Indication: PULMONARY ARTERIAL HYPERTENSION
     Dosage: 5 MG, QD
     Route: 065
     Dates: start: 20150219
  8. CARVEDILOL. [Concomitant]
     Active Substance: CARVEDILOL
  9. COZAAR [Concomitant]
     Active Substance: LOSARTAN POTASSIUM
  10. VITAMIN D [Concomitant]
     Active Substance: CHOLECALCIFEROL
  11. ADCIRCA [Concomitant]
     Active Substance: TADALAFIL
  12. POTASSIUM [Concomitant]
     Active Substance: POTASSIUM
  13. LEVOTHYROXINE [Concomitant]
     Active Substance: LEVOTHYROXINE
  14. METFORMIN [Concomitant]
     Active Substance: METFORMIN HYDROCHLORIDE
  15. ARIMIDEX [Concomitant]
     Active Substance: ANASTROZOLE
  16. COUMADIN [Concomitant]
     Active Substance: WARFARIN SODIUM

REACTIONS (2)
  - Chest pain [Not Recovered/Not Resolved]
  - Dyspnoea [Not Recovered/Not Resolved]

NARRATIVE: CASE EVENT DATE: 20150310
